FAERS Safety Report 15607046 (Version 1)
Quarter: 2018Q4

REPORT INFORMATION
  Report Type: Spontaneous
  Country: US (occurrence: US)
  Receive Date: 20181106
  Receipt Date: 20181106
  Transmission Date: 20190205
  Serious: No
  Sender: FDA-Public Use
  Company Number: None

PATIENT
  Age: 83 Year
  Sex: Female
  Weight: 80.88 kg

DRUGS (2)
  1. MORPHINE [Suspect]
     Active Substance: MORPHINE
     Route: 042
  2. FENTANYL. [Suspect]
     Active Substance: FENTANYL
     Indication: ORTHOPAEDIC PROCEDURE
     Route: 042

REACTIONS (3)
  - Vomiting [None]
  - General physical health deterioration [None]
  - Nausea [None]

NARRATIVE: CASE EVENT DATE: 20180709
